FAERS Safety Report 12520006 (Version 2)
Quarter: 2016Q3

REPORT INFORMATION
  Report Type: Spontaneous
  Country: US (occurrence: US)
  Receive Date: 20160630
  Receipt Date: 20160811
  Transmission Date: 20161109
  Serious: No
  Sender: FDA-Public Use
  Company Number: US-PFIZER INC-2016299600

PATIENT
  Age: 54 Year
  Sex: Female
  Weight: 50 kg

DRUGS (8)
  1. GABAPENTIN. [Suspect]
     Active Substance: GABAPENTIN
     Indication: NEUROPATHY PERIPHERAL
     Dosage: 600 MG, 4X/DAY, EVERY 6 HOURS
     Route: 048
     Dates: end: 2014
  2. LISINOPRIL. [Concomitant]
     Active Substance: LISINOPRIL
     Indication: HYPERTENSION
     Dosage: 20 MG, 2X/DAY
     Dates: start: 2000
  3. LORTAB [Concomitant]
     Active Substance: ACETAMINOPHEN\HYDROCODONE BITARTRATE
     Indication: PAIN
     Dosage: UNK UNK, 4X/DAY (10 MG/325 MG EVERY 6 HOURS)
     Dates: start: 1993
  4. SOMA [Concomitant]
     Active Substance: CARISOPRODOL
     Indication: MYALGIA
     Dosage: 350 MG, 4X/DAY
     Dates: start: 2000
  5. EXCEDRIN [Concomitant]
     Active Substance: ACETAMINOPHEN\ASPIRIN\CAFFEINE
     Indication: CLUSTER HEADACHE
  6. DIAZEPAM. [Concomitant]
     Active Substance: DIAZEPAM
     Indication: NEURALGIA
     Dosage: 10 MG, 3X/DAY
     Dates: start: 2010
  7. EXCEDRIN [Concomitant]
     Active Substance: ACETAMINOPHEN\ASPIRIN\CAFFEINE
     Indication: ARTHRITIS
     Dosage: 2 DF, 1X/DAY, EVERY MORNING
     Dates: start: 1980
  8. GABAPENTIN. [Suspect]
     Active Substance: GABAPENTIN
     Indication: FIBROMYALGIA

REACTIONS (1)
  - Drug ineffective for unapproved indication [Unknown]
